FAERS Safety Report 9805893 (Version 2)
Quarter: 2014Q1

REPORT INFORMATION
  Report Type: Spontaneous
  Country: US (occurrence: US)
  Receive Date: 20140109
  Receipt Date: 20140303
  Transmission Date: 20141002
  Serious: Yes (Hospitalization)
  Sender: FDA-Public Use
  Company Number: US-MYLANLABS-2013S1029152

PATIENT
  Sex: Female

DRUGS (1)
  1. MONTELUKAST SODIUM TABLETS [Suspect]
     Indication: ASTHMA
     Dates: start: 201307, end: 2013

REACTIONS (3)
  - Drug ineffective [Recovered/Resolved]
  - Asthma [Recovered/Resolved]
  - Dyspnoea [Recovered/Resolved]
